FAERS Safety Report 6561892-3 (Version None)
Quarter: 2010Q1

REPORT INFORMATION
  Report Type: 
  Country: None (occurrence: None)
  Receive Date: 20100130
  Receipt Date: 20091027
  Transmission Date: 20100710
  Serious: No
  Sender: FDA-Public Use
  Company Number: US-ABBOTT-09P-163-0606155-00

PATIENT
  Sex: Female
  Weight: 77.18 kg

DRUGS (8)
  1. HUMIRA [Suspect]
     Indication: RHEUMATOID ARTHRITIS
     Route: 058
     Dates: start: 20060101
  2. METOPROLOL [Concomitant]
     Indication: HYPERTENSION
     Dates: start: 20010101
  3. DIOVAN [Concomitant]
     Indication: HYPERTENSION
  4. METHOTREXATE [Concomitant]
     Indication: RHEUMATOID ARTHRITIS
  5. FOLIC ACID [Concomitant]
     Indication: RHEUMATOID ARTHRITIS
  6. NEXIUM [Concomitant]
     Indication: GASTROOESOPHAGEAL REFLUX DISEASE
  7. CRESTOR [Concomitant]
     Indication: BLOOD CHOLESTEROL INCREASED
     Dates: start: 20090801
  8. GLUCOSAMINE + CHONDROITIN [Concomitant]
     Indication: MEDICAL DIET
     Dosage: UNKNOWN

REACTIONS (8)
  - ARTHRALGIA [None]
  - BLISTER [None]
  - DRUG INEFFECTIVE [None]
  - FATIGUE [None]
  - FEELING HOT [None]
  - FINGER DEFORMITY [None]
  - NERVOUSNESS [None]
  - OEDEMA PERIPHERAL [None]
